FAERS Safety Report 23649132 (Version 4)
Quarter: 2025Q2

REPORT INFORMATION
  Report Type: Spontaneous
  Country: US (occurrence: US)
  Receive Date: 20240319
  Receipt Date: 20250626
  Transmission Date: 20250716
  Serious: Yes (Other)
  Sender: SANOFI AVENTIS
  Company Number: US-SA-SAC20240318000237

PATIENT
  Age: 27 Year
  Sex: Male

DRUGS (6)
  1. DUPIXENT [Suspect]
     Active Substance: DUPILUMAB
     Indication: Dermatitis atopic
     Route: 058
     Dates: start: 20230327, end: 20230327
  2. DUPIXENT [Suspect]
     Active Substance: DUPILUMAB
     Dosage: 300 MG, QOW
     Route: 058
     Dates: start: 2023
  3. DUPIXENT [Suspect]
     Active Substance: DUPILUMAB
     Dosage: 300 MG, QOW
     Route: 058
     Dates: start: 202401
  4. ALBUTEROL [Concomitant]
     Active Substance: ALBUTEROL
  5. EPIPEN [Concomitant]
     Active Substance: EPINEPHRINE
  6. ATENOLOL [Concomitant]
     Active Substance: ATENOLOL
     Dosage: UNK, QD

REACTIONS (6)
  - Loss of consciousness [Recovered/Resolved]
  - Head injury [Unknown]
  - Concussion [Unknown]
  - Dermatitis atopic [Unknown]
  - Arthralgia [Recovered/Resolved]
  - Therapeutic response shortened [Unknown]

NARRATIVE: CASE EVENT DATE: 20230301
